FAERS Safety Report 8766414 (Version 1)
Quarter: 2012Q4

REPORT INFORMATION
  Report Type: 
  Country: AU (occurrence: AU)
  Receive Date: 20120904
  Receipt Date: 20120904
  Transmission Date: 20130627
  Serious: Yes (Hospitalization)
  Sender: FDA-Public Use
  Company Number: PHHY2012AU076242

PATIENT
  Sex: Male

DRUGS (1)
  1. CLOZARIL [Suspect]
     Dosage: 900 mg
     Route: 048
     Dates: start: 20020226

REACTIONS (2)
  - Toxicity to various agents [Unknown]
  - Antipsychotic drug level increased [Unknown]
